FAERS Safety Report 23393899 (Version 3)
Quarter: 2025Q3

REPORT INFORMATION
  Report Type: Report from Study
  Country: US (occurrence: US)
  Receive Date: 20240111
  Receipt Date: 20250708
  Transmission Date: 20251020
  Serious: Yes (Hospitalization, Other)
  Sender: ABBVIE
  Company Number: US-ABBVIE-5581091

PATIENT
  Sex: Female

DRUGS (1)
  1. SYNTHROID [Suspect]
     Active Substance: LEVOTHYROXINE SODIUM
     Indication: Hypothyroidism
     Dosage: FORM STRENGTH: 175 MICROGRAM
     Route: 048

REACTIONS (9)
  - Neoplasm malignant [Not Recovered/Not Resolved]
  - Hospitalisation [Unknown]
  - Blood thyroid stimulating hormone decreased [Unknown]
  - Heart rate decreased [Unknown]
  - Thyroxine free increased [Unknown]
  - Thyroid hormones increased [Unknown]
  - Heart rate increased [Unknown]
  - Cardiac failure [Unknown]
  - Pneumonia [Unknown]
